FAERS Safety Report 8377432-2 (Version None)
Quarter: 2012Q2

REPORT INFORMATION
  Report Type: 
  Country: None (occurrence: None)
  Receive Date: 20120522
  Receipt Date: 20110811
  Transmission Date: 20120825
  Serious: Yes (Other)
  Sender: FDA-Public Use
  Company Number: US-ASTRAZENECA-2011SE48071

PATIENT
  Age: 36 Year
  Sex: Male

DRUGS (5)
  1. CHANTIX [Suspect]
     Route: 048
  2. PRILOSEC [Suspect]
     Route: 048
  3. CHANTIX [Suspect]
     Route: 048
  4. PAXIL [Suspect]
     Route: 065
  5. ZYRTEC [Suspect]
     Route: 065

REACTIONS (4)
  - GASTROOESOPHAGEAL REFLUX DISEASE [None]
  - CHEST PAIN [None]
  - DEPRESSION [None]
  - PAIN IN EXTREMITY [None]
